FAERS Safety Report 5346373-7 (Version None)
Quarter: 2007Q2

REPORT INFORMATION
  Report Type: 
  Country: None (occurrence: None)
  Receive Date: 20070430
  Receipt Date: 20070125
  Transmission Date: 20071010
  Serious: No
  Sender: FDA-Public Use
  Company Number: 012798

PATIENT
  Age: 84 Year
  Sex: Female

DRUGS (4)
  1. PRIALT [Suspect]
     Indication: NEURALGIA
     Dosage: SEE IMAGE
     Route: 037
     Dates: end: 20070117
  2. PRIALT [Suspect]
     Indication: NEURALGIA
     Dosage: SEE IMAGE
     Route: 037
     Dates: start: 20060901
  3. PRIALT [Suspect]
     Indication: NEURALGIA
     Dosage: SEE IMAGE
     Route: 037
     Dates: start: 20070117
  4. FENTANYL [Concomitant]

REACTIONS (6)
  - CHOKING SENSATION [None]
  - DISORIENTATION [None]
  - GAIT DISTURBANCE [None]
  - MUSCLE SPASMS [None]
  - PALPITATIONS [None]
  - PARAESTHESIA [None]
